FAERS Safety Report 15547894 (Version 4)
Quarter: 2020Q1

REPORT INFORMATION
  Report Type: Spontaneous
  Country: US (occurrence: US)
  Receive Date: 20181024
  Receipt Date: 20200127
  Transmission Date: 20200409
  Serious: No
  Sender: FDA-Public Use
  Company Number: US-ARBOR PHARMACEUTICALS, LLC-US-2018ARB000842

PATIENT
  Sex: Female
  Weight: 39.9 kg

DRUGS (3)
  1. KEPPRA [Concomitant]
     Active Substance: LEVETIRACETAM
     Indication: PRODUCT USED FOR UNKNOWN INDICATION
     Dosage: UNK
  2. TRIPTODUR [Suspect]
     Active Substance: TRIPTORELIN
     Dosage: UNK
  3. TRIPTODUR [Suspect]
     Active Substance: TRIPTORELIN
     Indication: PRECOCIOUS PUBERTY
     Dosage: 22.5 MG, SINGLE
     Route: 030
     Dates: start: 20180608, end: 20180608

REACTIONS (4)
  - Acne [Not Recovered/Not Resolved]
  - Hyperhidrosis [Not Recovered/Not Resolved]
  - Mood altered [Not Recovered/Not Resolved]
  - Acne [Recovering/Resolving]

NARRATIVE: CASE EVENT DATE: 2018
